FAERS Safety Report 7352352-0 (Version None)
Quarter: 2011Q1

REPORT INFORMATION
  Report Type: 
  Country: None (occurrence: None)
  Receive Date: 20110309
  Receipt Date: 20110309
  Transmission Date: 20110831
  Serious: Yes (Life-Threatening)
  Sender: FDA-Public Use
  Company Number: None

PATIENT
  Age: 51 Year
  Sex: Female
  Weight: 73.4827 kg

DRUGS (1)
  1. EMBEDA [Suspect]
     Indication: BACK PAIN
     Dosage: TAKE 1 CAPSULE EVERY 12 HOURS 1
     Dates: start: 20110224, end: 20110324

REACTIONS (11)
  - PRURITUS [None]
  - NAUSEA [None]
  - HEADACHE [None]
  - VISION BLURRED [None]
  - PRODUCT QUALITY ISSUE [None]
  - DYSPNOEA [None]
  - DRY MOUTH [None]
  - ANXIETY [None]
  - TREMOR [None]
  - RASH [None]
  - INSOMNIA [None]
